FAERS Safety Report 20797892 (Version 1)
Quarter: 2022Q2

REPORT INFORMATION
  Report Type: Spontaneous
  Country: US (occurrence: None)
  Receive Date: 20220506
  Receipt Date: 20220506
  Transmission Date: 20220720
  Serious: Yes (Hospitalization)
  Sender: FDA-Public Use
  Company Number: None

PATIENT
  Sex: Female

DRUGS (1)
  1. BETHKIS [Suspect]
     Active Substance: TOBRAMYCIN
     Indication: Bronchiectasis
     Dosage: OTHER QUANTITY : 300/4 MG/ML;?OTHER FREQUENCY : 2X DAILY EVERY OTH;?USE 1 VIAL VIA NEBULIZER TWICE D
     Route: 055
     Dates: start: 20170413

REACTIONS (1)
  - COVID-19 [None]
